FAERS Safety Report 19087847 (Version 1)
Quarter: 2021Q2

REPORT INFORMATION
  Report Type: Spontaneous
  Country: AU (occurrence: AU)
  Receive Date: 20210402
  Receipt Date: 20210402
  Transmission Date: 20210717
  Serious: Yes (Hospitalization)
  Sender: FDA-Public Use
  Company Number: AU-TAKEDA-2021TUS019933

PATIENT
  Sex: Female

DRUGS (2)
  1. FIRAZYR [Suspect]
     Active Substance: ICATIBANT ACETATE
     Route: 065
  2. FIRAZYR [Suspect]
     Active Substance: ICATIBANT ACETATE
     Route: 065

REACTIONS (1)
  - Hospitalisation [Unknown]
